FAERS Safety Report 7456052-8 (Version None)
Quarter: 2011Q2

REPORT INFORMATION
  Report Type: 
  Country: None (occurrence: None)
  Receive Date: 20110503
  Receipt Date: 20110427
  Transmission Date: 20111010
  Serious: No
  Sender: FDA-Public Use
  Company Number: US-PFIZER INC-2011083482

PATIENT
  Sex: Female
  Weight: 74.376 kg

DRUGS (4)
  1. HYDROCORTISONE [Concomitant]
     Indication: HYPERTENSION
     Dosage: UNK
  2. MECLIZINE HCL [Suspect]
     Indication: VERTIGO
     Dosage: UNK
     Dates: start: 20110401
  3. ANTIVERT ^PFIZER^ [Concomitant]
     Indication: VERTIGO
     Dosage: UNK
     Route: 048
     Dates: end: 20110401
  4. ZOCOR [Concomitant]
     Indication: BLOOD CHOLESTEROL INCREASED
     Dosage: 25 MG, 1X/DAY
     Route: 048

REACTIONS (2)
  - DRUG INEFFECTIVE [None]
  - DIZZINESS [None]
